FAERS Safety Report 4661135-1 (Version None)
Quarter: 2005Q2

REPORT INFORMATION
  Report Type: 
  Country: None (occurrence: None)
  Receive Date: 20050511
  Receipt Date: 20050430
  Transmission Date: 20051028
  Serious: Yes (Other)
  Sender: FDA-Public Use
  Company Number: 2005061396

PATIENT
  Sex: Male

DRUGS (2)
  1. BEXTRA [Suspect]
     Indication: ARTHROPATHY
     Dosage: 40 MG (1 IN 1 D), ORAL
     Route: 048
     Dates: start: 20050410, end: 20050412
  2. TENORETIC 100 [Concomitant]

REACTIONS (4)
  - EYE IRRITATION [None]
  - EYE OEDEMA [None]
  - MALAISE [None]
  - OCULAR HYPERAEMIA [None]
